FAERS Safety Report 23136939 (Version 2)
Quarter: 2023Q4

REPORT INFORMATION
  Report Type: Report from Study
  Country: TH (occurrence: TH)
  Receive Date: 20231102
  Receipt Date: 20231120
  Transmission Date: 20240110
  Serious: Yes (Other)
  Sender: FDA-Public Use
  Company Number: TH-002147023-NVSC2023TH197749

PATIENT
  Age: 66 Year
  Sex: Female
  Weight: 57.7 kg

DRUGS (14)
  1. KISQALI [Suspect]
     Active Substance: RIBOCICLIB
     Indication: Breast cancer metastatic
     Dosage: 3 DOSAGE FORM (200 MG TABLETS, DAILY FOR 21 DAYS)
     Route: 048
     Dates: start: 20220610, end: 202208
  2. KISQALI [Suspect]
     Active Substance: RIBOCICLIB
     Dosage: 2 DOSAGE FORM, QD (200 MG TABLETS, DAILY FOR 21 DAYS)
     Route: 048
     Dates: start: 20220823
  3. KISQALI [Suspect]
     Active Substance: RIBOCICLIB
     Dosage: 400 MG
     Route: 048
     Dates: start: 20230315, end: 20230330
  4. KISQALI [Suspect]
     Active Substance: RIBOCICLIB
     Dosage: 2 DOSAGE FORM, QD (200 MG TABLETS)
     Route: 048
     Dates: start: 20230417
  5. KISQALI [Suspect]
     Active Substance: RIBOCICLIB
     Dosage: 200 MG, QD (1 TABLET, 3 WEEKS ON AND 1 WEEK OFF)
     Route: 048
     Dates: start: 20230811
  6. KISQALI [Suspect]
     Active Substance: RIBOCICLIB
     Dosage: 200 MG, QD (1 TABLET)
     Route: 065
     Dates: start: 20230601
  7. KISQALI [Suspect]
     Active Substance: RIBOCICLIB
     Dosage: 200 MG, BID (WM)
     Route: 065
     Dates: start: 20230908, end: 20230928
  8. KISQALI [Suspect]
     Active Substance: RIBOCICLIB
     Dosage: 200 MG
     Route: 048
     Dates: end: 20231019
  9. KISQALI [Suspect]
     Active Substance: RIBOCICLIB
     Dosage: 1 DOSAGE FORM, QD
     Route: 048
     Dates: end: 20231026
  10. FEMARA [Suspect]
     Active Substance: LETROZOLE
     Indication: Product used for unknown indication
     Dosage: 2.5 MG, QD (1 TABLET) (DAILY AFTER BREAKFAST)
     Route: 065
     Dates: start: 20220610, end: 202208
  11. FEMARA [Suspect]
     Active Substance: LETROZOLE
     Dosage: 1 DOSAGE FORM, QD
     Route: 065
     Dates: start: 20230119, end: 20231019
  12. CALTREX [Concomitant]
     Indication: Product used for unknown indication
     Dosage: TAKE 1 TAB AT A TIME BEFORE BED
     Route: 065
  13. ERGOCALCIFEROL [Concomitant]
     Active Substance: ERGOCALCIFEROL
     Indication: Product used for unknown indication
     Dosage: UNK (VITAMIN)
     Route: 065
  14. ZOLENNIC [Concomitant]
     Indication: Product used for unknown indication
     Dosage: 3.3 MG ((CANCER PATIENTS) (OUT67) 3.3MG IN NSS 100ML IV DRIP IN 15MIN)
     Route: 041

REACTIONS (44)
  - Drug-induced liver injury [Unknown]
  - Hypertransaminasaemia [Recovering/Resolving]
  - Alanine aminotransferase increased [Recovering/Resolving]
  - Liver function test increased [Unknown]
  - Aspartate aminotransferase increased [Recovering/Resolving]
  - Necrosis [Unknown]
  - Chronic hepatitis [Unknown]
  - Carcinoembryonic antigen increased [Unknown]
  - Bone cancer [Unknown]
  - Malignant lymphoid neoplasm [Unknown]
  - Metastases to bone [Unknown]
  - Metastases to pleura [Unknown]
  - Breast cancer metastatic [Unknown]
  - Malignant neoplasm progression [Unknown]
  - Neutropenia [Unknown]
  - Second primary malignancy [Unknown]
  - Metastases to spine [Unknown]
  - Hypotension [Unknown]
  - Antinuclear antibody positive [Unknown]
  - Blood immunoglobulin G increased [Unknown]
  - Pancreatic disorder [Unknown]
  - Hepatic steatosis [Unknown]
  - Bundle branch block right [Unknown]
  - Constipation [Unknown]
  - White blood cell count decreased [Unknown]
  - Lymphadenopathy [Unknown]
  - Carbohydrate antigen 15-3 increased [Unknown]
  - Pain [Unknown]
  - Lymph node calcification [Unknown]
  - Pulmonary calcification [Unknown]
  - Thyroid cyst [Unknown]
  - Hepatic lesion [Unknown]
  - Blood creatinine increased [Unknown]
  - Glomerular filtration rate decreased [Unknown]
  - Red blood cell count decreased [Unknown]
  - Mean cell volume increased [Unknown]
  - Mean cell haemoglobin increased [Unknown]
  - Eosinophil count increased [Unknown]
  - Drug resistance [Unknown]
  - Fatigue [Recovered/Resolved]
  - Fatigue [Unknown]
  - Decreased appetite [Unknown]
  - Weight decreased [Unknown]
  - Dizziness [Unknown]

NARRATIVE: CASE EVENT DATE: 20220623
